FAERS Safety Report 11660890 (Version 2)
Quarter: 2015Q4

REPORT INFORMATION
  Report Type: Spontaneous
  Country: JP (occurrence: JP)
  Receive Date: 20151026
  Receipt Date: 20151113
  Transmission Date: 20160304
  Serious: Yes (Death, Other)
  Sender: FDA-Public Use
  Company Number: JP-ELI_LILLY_AND_COMPANY-JP201510007724

PATIENT
  Age: 25 Year
  Sex: Female
  Weight: 61 kg

DRUGS (13)
  1. MINIPRESS [Concomitant]
     Active Substance: PRAZOSIN HYDROCHLORIDE
     Dosage: .5 MG, BID
     Route: 048
     Dates: start: 20150818, end: 20150923
  2. ADALAT [Concomitant]
     Active Substance: NIFEDIPINE
     Dosage: 40 MG, TID
     Route: 048
     Dates: start: 20150625, end: 20150817
  3. MINIPRESS [Concomitant]
     Active Substance: PRAZOSIN HYDROCHLORIDE
     Indication: RENOVASCULAR HYPERTENSION
     Dosage: .5 MG, BID
     Route: 048
     Dates: start: 20150319, end: 20150624
  4. MINIPRESS [Concomitant]
     Active Substance: PRAZOSIN HYDROCHLORIDE
     Dosage: .5 MG, TID
     Route: 048
     Dates: start: 20150924
  5. ADALAT [Concomitant]
     Active Substance: NIFEDIPINE
     Indication: RENOVASCULAR HYPERTENSION
     Dosage: 40 MG, BID
     Route: 048
     Dates: start: 20150319, end: 20150624
  6. ADALAT [Concomitant]
     Active Substance: NIFEDIPINE
     Dosage: 40 MG, TID
     Route: 048
     Dates: start: 20150924
  7. PARIET [Concomitant]
     Active Substance: RABEPRAZOLE SODIUM
     Indication: GASTRIC ULCER
     Dosage: 10 MG, QD
     Route: 048
     Dates: start: 20150924
  8. PRASUGREL HYDROCHLORIDE [Suspect]
     Active Substance: PRASUGREL HYDROCHLORIDE
     Indication: STENT PLACEMENT
     Dosage: 3.75 MG, QD
     Route: 048
     Dates: start: 20150924
  9. PRASUGREL HYDROCHLORIDE [Suspect]
     Active Substance: PRASUGREL HYDROCHLORIDE
     Indication: RENOVASCULAR HYPERTENSION
  10. BAYASPIRIN [Suspect]
     Active Substance: ASPIRIN
     Indication: RENOVASCULAR HYPERTENSION
     Dosage: 100 MG, QD
     Route: 048
     Dates: start: 20150924
  11. ADALAT [Concomitant]
     Active Substance: NIFEDIPINE
     Dosage: 40 MG, BID
     Route: 048
     Dates: start: 20150808, end: 20150923
  12. MINIPRESS [Concomitant]
     Active Substance: PRAZOSIN HYDROCHLORIDE
     Dosage: .5 MG, TID
     Route: 048
     Dates: start: 20150625, end: 20150817
  13. ENALAPRIL [Concomitant]
     Active Substance: ENALAPRIL
     Indication: RENOVASCULAR HYPERTENSION
     Dosage: 5 MG, QD
     Route: 048
     Dates: start: 20150716

REACTIONS (3)
  - Diabetes insipidus [Unknown]
  - Off label use [Unknown]
  - Putamen haemorrhage [Fatal]

NARRATIVE: CASE EVENT DATE: 20151010
